FAERS Safety Report 9601754 (Version 1)
Quarter: 2013Q4

REPORT INFORMATION
  Report Type: Spontaneous
  Country: US (occurrence: US)
  Receive Date: 20131007
  Receipt Date: 20131007
  Transmission Date: 20140711
  Serious: Yes (Other)
  Sender: FDA-Public Use
  Company Number: US-JNJFOC-20131000369

PATIENT
  Age: 65 Year
  Sex: Female
  Weight: 53.07 kg

DRUGS (2)
  1. IMODIUM MULTI-SYMPTOM RELIEF [Suspect]
     Route: 048
  2. IMODIUM MULTI-SYMPTOM RELIEF [Suspect]
     Indication: DIARRHOEA
     Dosage: AS NEEDED
     Route: 048
     Dates: end: 20130929

REACTIONS (4)
  - Foreign body [Unknown]
  - Choking [Recovering/Resolving]
  - Oropharyngeal pain [Unknown]
  - Product shape issue [Unknown]
